FAERS Safety Report 23134323 (Version 9)
Quarter: 2024Q2

REPORT INFORMATION
  Report Type: Report from Study
  Country: US (occurrence: US)
  Receive Date: 20231101
  Receipt Date: 20240610
  Transmission Date: 20240716
  Serious: Yes (Other)
  Sender: FDA-Public Use
  Company Number: US-002147023-NVSC2023US232215

PATIENT
  Sex: Female

DRUGS (1)
  1. KESIMPTA [Suspect]
     Active Substance: OFATUMUMAB
     Indication: Relapsing multiple sclerosis
     Dosage: UNK
     Route: 065
     Dates: start: 20230824

REACTIONS (9)
  - Delirium [Unknown]
  - Multiple sclerosis [Unknown]
  - Brain fog [Unknown]
  - Temperature intolerance [Unknown]
  - Road traffic accident [Unknown]
  - Headache [Unknown]
  - Dyslexia [Unknown]
  - Fatigue [Unknown]
  - Musculoskeletal stiffness [Unknown]
